FAERS Safety Report 9084936 (Version 3)
Quarter: 2013Q3

REPORT INFORMATION
  Report Type: Spontaneous
  Country: US (occurrence: US)
  Receive Date: 20130218
  Receipt Date: 20130906
  Transmission Date: 20140515
  Serious: Yes (Hospitalization, Other)
  Sender: FDA-Public Use
  Company Number: US-BAYER-2013-018641

PATIENT
  Age: 30 Year
  Sex: Female

DRUGS (14)
  1. OCELLA [Suspect]
  2. ZARAH [Suspect]
     Dosage: UNK
     Dates: start: 20101029, end: 20101219
  3. IBUPROFEN [Concomitant]
     Dosage: 800 UNK, EVERY 8 HOURS PRN [
     Route: 048
     Dates: start: 20021228, end: 20121121
  4. SERTRALINE [Concomitant]
     Dosage: 25 MG, DAILY
     Route: 048
     Dates: start: 20101111
  5. ALPRAZOLAM [Concomitant]
     Dosage: 0.25 MG, QHS TO THREE TIMES DAILY PRN
     Dates: start: 20101111, end: 20110103
  6. PRILOSEC [Concomitant]
     Indication: PAIN
  7. YAZ [Suspect]
     Dosage: UNK
     Dates: start: 2009, end: 2010
  8. YASMIN [Suspect]
     Dosage: UNK
     Dates: start: 2009, end: 2010
  9. FLAGYL [Concomitant]
     Dosage: 500 MG, BID
  10. ERGOCALCIFEROL [Concomitant]
     Dosage: 5000 U, UNK
     Route: 048
  11. NAPROSYN [Concomitant]
     Dosage: 500 MG, BID
     Route: 048
  12. ZOLOFT [Concomitant]
  13. XANAX [Concomitant]
     Dosage: 0.25 MG, UNK
  14. VICODIN [Concomitant]
     Dosage: 5/500 BY MOUTH 2 TIMES A DAY AS NEEDED

REACTIONS (10)
  - Pulmonary embolism [Recovered/Resolved]
  - Deep vein thrombosis [Recovered/Resolved]
  - Pulmonary embolism [None]
  - Cholelithiasis [None]
  - Pain [None]
  - Abdominal pain [None]
  - General physical health deterioration [Recovered/Resolved]
  - Anxiety [None]
  - Injury [Recovered/Resolved]
  - Emotional distress [None]
